FAERS Safety Report 5068409-3 (Version None)
Quarter: 2006Q3

REPORT INFORMATION
  Report Type: 
  Country: None (occurrence: None)
  Receive Date: 20060802
  Receipt Date: 20050914
  Transmission Date: 20061208
  Serious: No
  Sender: FDA-Public Use
  Company Number: US-BRISTOL-MYERS SQUIBB COMPANY-13111042

PATIENT
  Age: 80 Year
  Sex: Female
  Weight: 77 kg

DRUGS (4)
  1. COUMADIN [Suspect]
     Indication: DEEP VEIN THROMBOSIS
     Dosage: 3 TABS ON SAT, MON, WED, AND FRI AND 2 TABS ON SUN, TUES, AND THURS
  2. COUMADIN [Suspect]
     Indication: PULMONARY EMBOLISM
     Dosage: 3 TABS ON SAT, MON, WED, AND FRI AND 2 TABS ON SUN, TUES, AND THURS
  3. POTASSIUM [Concomitant]
  4. AMBIEN [Concomitant]
     Dosage: 1/2 TABLET AT BEDTIME

REACTIONS (4)
  - INSOMNIA [None]
  - INTERNATIONAL NORMALISED RATIO DECREASED [None]
  - PAIN [None]
  - WEIGHT DECREASED [None]
